FAERS Safety Report 8937092 (Version 1)
Quarter: 2012Q4

REPORT INFORMATION
  Report Type: Spontaneous
  Country: US (occurrence: None)
  Receive Date: 20121128
  Receipt Date: 20121128
  Transmission Date: 20130627
  Serious: Yes (Other)
  Sender: FDA-Public Use
  Company Number: None

PATIENT
  Sex: Male

DRUGS (2)
  1. PEGASYS [Suspect]
     Indication: HEPATITIS C
     Dosage: 180mcg q week sq
     Route: 058
     Dates: start: 20120815, end: 20121126
  2. RIBASPHERE [Suspect]
     Dosage: 400mg/400mg 1 am and 1 pm po
     Route: 048

REACTIONS (4)
  - Rash [None]
  - Blister [None]
  - Pruritus [None]
  - Multiple allergies [None]
